FAERS Safety Report 9848441 (Version 2)
Quarter: 2014Q1

REPORT INFORMATION
  Report Type: Spontaneous
  Country: US (occurrence: US)
  Receive Date: 20140128
  Receipt Date: 20140128
  Transmission Date: 20141002
  Serious: Yes (Death)
  Sender: FDA-Public Use
  Company Number: US-GE HEALTHCARE MEDICAL DIAGNOSTICS-OSCN-PR-0804S-0232

PATIENT
  Age: 57 Year
  Sex: Female

DRUGS (8)
  1. OMNISCAN [Suspect]
     Indication: TRANSPLANT
     Route: 042
     Dates: start: 19960201, end: 19960201
  2. OMNISCAN [Suspect]
     Indication: LYMPHADENOPATHY
     Route: 042
     Dates: start: 20000323, end: 20000323
  3. OMNISCAN [Suspect]
     Indication: PANCREATIC DISORDER
     Route: 042
     Dates: start: 20020114, end: 20020114
  4. OMNISCAN [Suspect]
     Indication: CEREBROVASCULAR ACCIDENT
     Route: 042
     Dates: start: 20020228, end: 20020228
  5. OMNISCAN [Suspect]
     Indication: HEADACHE
     Route: 042
     Dates: start: 20020814, end: 20020814
  6. OMNISCAN [Suspect]
     Indication: HEADACHE
     Route: 042
     Dates: start: 20041205, end: 20041205
  7. OMNISCAN [Suspect]
     Route: 042
     Dates: start: 20060111, end: 20060111
  8. OMNISCAN [Suspect]
     Route: 042
     Dates: start: 20060111, end: 20060111

REACTIONS (1)
  - Nephrogenic systemic fibrosis [Fatal]
